FAERS Safety Report 17960628 (Version 1)
Quarter: 2020Q2

REPORT INFORMATION
  Report Type: Report from Study
  Country: None (occurrence: US)
  Receive Date: 20200630
  Receipt Date: 20200630
  Transmission Date: 20200714
  Serious: Yes (Other)
  Sender: FDA-Public Use
  Company Number: US-BIOVITRUM-2019US3189

PATIENT
  Sex: Female

DRUGS (1)
  1. KINERET [Suspect]
     Active Substance: ANAKINRA
     Indication: RHEUMATOID ARTHRITIS
     Route: 058
     Dates: start: 20190822

REACTIONS (5)
  - Injection site pain [Unknown]
  - Breast abscess [Recovering/Resolving]
  - Injection site erythema [Unknown]
  - Rash macular [Unknown]
  - Injection site bruising [Unknown]
